FAERS Safety Report 9891722 (Version 1)
Quarter: 2014Q1

REPORT INFORMATION
  Report Type: Spontaneous
  Country: IT (occurrence: IT)
  Receive Date: 20140212
  Receipt Date: 20140212
  Transmission Date: 20141002
  Serious: Yes (Hospitalization)
  Sender: FDA-Public Use
  Company Number: PHHY2014IT016024

PATIENT
  Age: 54 Year
  Sex: Female

DRUGS (10)
  1. MYFORTIC [Suspect]
     Indication: RENAL TRANSPLANT
     Dosage: 540 MG, QD
     Route: 048
     Dates: start: 19990601
  2. SANDIMMUNE NEORAL [Suspect]
     Indication: RENAL TRANSPLANT
     Dosage: 100 MG, QD
     Route: 048
     Dates: start: 19990601
  3. SANDIMMUNE NEORAL [Suspect]
     Dosage: DOSE REDUCED TO 50 PERCENT
     Route: 048
  4. CRESTOR [Suspect]
     Indication: HYPERCHOLESTEROLAEMIA
     Dosage: 10 MG, QD
     Route: 048
     Dates: start: 20131201, end: 20140117
  5. ATENOLOL [Concomitant]
     Dosage: 50 MG, UNK
     Route: 048
  6. ERYTHROPOIETIN [Concomitant]
     Dosage: 4000 U, UNK
     Route: 058
  7. URBASON                                 /GFR/ [Concomitant]
     Dosage: UNK UKN, UNK
  8. LUCEN [Concomitant]
     Dosage: UNK UKN, UNK
  9. DUOPLAVIN [Concomitant]
     Dosage: UNK UKN, UNK
  10. BRILIQUE [Concomitant]
     Dosage: UNK UKN, UNK

REACTIONS (4)
  - Rhabdomyolysis [Recovered/Resolved]
  - Hepatitis [Recovered/Resolved]
  - Renal failure acute [Recovered/Resolved]
  - Diarrhoea [Recovered/Resolved]
